FAERS Safety Report 6390542-4 (Version None)
Quarter: 2009Q4

REPORT INFORMATION
  Report Type: 
  Country: None (occurrence: None)
  Receive Date: 20091003
  Receipt Date: 20090921
  Transmission Date: 20100525
  Serious: Yes (Death, Hospitalization)
  Sender: FDA-Public Use
  Company Number: A-US2009-27400

PATIENT
  Age: 38 Week
  Sex: Female

DRUGS (8)
  1. TRACLEER [Suspect]
     Indication: PULMONARY ARTERIAL HYPERTENSION
     Dosage: 15.625 MG, BID, ORAL ; 15.625 MG, QD, ORAL
     Route: 048
     Dates: start: 20090727, end: 20090801
  2. TRACLEER [Suspect]
     Indication: PULMONARY ARTERIAL HYPERTENSION
     Dosage: 15.625 MG, BID, ORAL ; 15.625 MG, QD, ORAL
     Route: 048
     Dates: start: 20090801, end: 20090907
  3. ENOXAPARIN SODIUM [Concomitant]
  4. ALDACTAZIDE [Concomitant]
  5. CEFUROX (CEFUROXIME) [Concomitant]
  6. OMEPRAZOLE [Concomitant]
  7. LASIX [Concomitant]
  8. DOMEPERIDONE (DOMPERIDONE) [Concomitant]

REACTIONS (6)
  - BRADYCARDIA [None]
  - DISEASE PROGRESSION [None]
  - OFF LABEL USE [None]
  - OXYGEN SATURATION DECREASED [None]
  - PULMONARY HYPERTENSION [None]
  - RESPIRATORY TRACT INFECTION [None]
